FAERS Safety Report 7607455 (Version 3)
Quarter: 2018Q1

REPORT INFORMATION
  Report Type: Spontaneous
  Country: FR (occurrence: FR)
  Receive Date: 20100927
  Receipt Date: 20180306
  Transmission Date: 20180509
  Serious: Yes (Other)
  Sender: FDA-Public Use
  Company Number: FR-JNJFOC-20100907089

PATIENT
  Age: 39 Year
  Sex: Female

DRUGS (5)
  1. SUFENTANIL CITRATE. [Suspect]
     Active Substance: SUFENTANIL CITRATE
     Indication: PERIOPERATIVE ANALGESIA
     Route: 042
  2. KETOPROFEN. [Suspect]
     Active Substance: KETOPROFEN
     Indication: PERIOPERATIVE ANALGESIA
     Route: 042
  3. PARACETAMOL [Suspect]
     Active Substance: ACETAMINOPHEN
     Indication: PERIOPERATIVE ANALGESIA
     Route: 042
  4. MORPHINE [Suspect]
     Active Substance: MORPHINE
     Indication: POSTOPERATIVE ANALGESIA
     Route: 042
  5. PARACETAMOL [Suspect]
     Active Substance: ACETAMINOPHEN
     Route: 042

REACTIONS (4)
  - Intestinal pseudo-obstruction [Recovered/Resolved]
  - Exposure during pregnancy [Recovered/Resolved]
  - Pain [Unknown]
  - Hyperthermia [Unknown]
